FAERS Safety Report 10050423 (Version 6)
Quarter: 2015Q2

REPORT INFORMATION
  Report Type: Spontaneous
  Country: US (occurrence: US)
  Receive Date: 20140401
  Receipt Date: 20150604
  Transmission Date: 20150821
  Serious: Yes (Disabling, Other)
  Sender: FDA-Public Use
  Company Number: US-009507513-1403USA012078

PATIENT
  Sex: Male

DRUGS (1)
  1. PROPECIA [Suspect]
     Active Substance: FINASTERIDE
     Indication: ALOPECIA
     Dosage: 1 MG, UNK
     Route: 048
     Dates: start: 200007, end: 201108

REACTIONS (62)
  - Heart rate increased [Not Recovered/Not Resolved]
  - Bipolar disorder [Not Recovered/Not Resolved]
  - Depression [Not Recovered/Not Resolved]
  - Abdominal pain upper [Unknown]
  - Dyspepsia [Unknown]
  - Fatigue [Not Recovered/Not Resolved]
  - Pollakiuria [Unknown]
  - Micturition urgency [Unknown]
  - Irritable bowel syndrome [Unknown]
  - Mood disorder due to a general medical condition [Unknown]
  - Hypertension [Unknown]
  - Micturition urgency [Unknown]
  - Feeling of body temperature change [Unknown]
  - Migraine [Unknown]
  - Dyskinesia [Unknown]
  - Cognitive disorder [Not Recovered/Not Resolved]
  - Nervous system disorder [Unknown]
  - Pollakiuria [Unknown]
  - Tremor [Unknown]
  - Attention deficit/hyperactivity disorder [Unknown]
  - Feeling abnormal [Unknown]
  - Hypogonadism [Unknown]
  - Hypertension [Unknown]
  - Arthritis [Not Recovered/Not Resolved]
  - Panic attack [Not Recovered/Not Resolved]
  - Amnesia [Not Recovered/Not Resolved]
  - Hormone level abnormal [Unknown]
  - Infertility [Unknown]
  - Breast pain [Unknown]
  - Adverse event [Unknown]
  - Suicidal ideation [Unknown]
  - Anxiety [Not Recovered/Not Resolved]
  - Confusional state [Unknown]
  - Testicular pain [Unknown]
  - Gynaecomastia [Not Recovered/Not Resolved]
  - Hypercholesterolaemia [Unknown]
  - Suicide attempt [Unknown]
  - Surgery [Unknown]
  - Paranoia [Not Recovered/Not Resolved]
  - Hand fracture [Unknown]
  - Rash [Unknown]
  - Myocardial infarction [Unknown]
  - Vision blurred [Unknown]
  - Myalgia [Unknown]
  - Back pain [Not Recovered/Not Resolved]
  - Sleep disorder [Unknown]
  - Anger [Not Recovered/Not Resolved]
  - Loss of libido [Unknown]
  - Anogenital warts [Unknown]
  - Insomnia [Unknown]
  - Stress [Unknown]
  - Erectile dysfunction [Unknown]
  - Loss of employment [Unknown]
  - Nocturia [Unknown]
  - Decreased interest [Not Recovered/Not Resolved]
  - Transaminases increased [Unknown]
  - Nephrolithiasis [Unknown]
  - Nocturia [Unknown]
  - Urinary tract infection [Unknown]
  - Drug ineffective [Unknown]
  - Semen analysis abnormal [Unknown]
  - Musculoskeletal discomfort [Unknown]

NARRATIVE: CASE EVENT DATE: 2000
